FAERS Safety Report 23517892 (Version 2)
Quarter: 2024Q2

REPORT INFORMATION
  Report Type: Report from Study
  Country: CZ (occurrence: CZ)
  Receive Date: 20240213
  Receipt Date: 20240413
  Transmission Date: 20240716
  Serious: Yes (Other)
  Sender: FDA-Public Use
  Company Number: CZ-ABBVIE-5637695

PATIENT
  Age: 69 Year
  Sex: Female

DRUGS (13)
  1. RINVOQ [Suspect]
     Active Substance: UPADACITINIB
     Indication: Rheumatoid arthritis
     Route: 048
     Dates: start: 20230529, end: 20230820
  2. ACETAMINOPHEN\TRAMADOL HYDROCHLORIDE [Concomitant]
     Active Substance: ACETAMINOPHEN\TRAMADOL HYDROCHLORIDE
     Indication: Product used for unknown indication
     Dosage: 75MG/650MG?MAX 4 TABLET PER DAY
  3. LEVOTHYROXINE SODIUM [Concomitant]
     Active Substance: LEVOTHYROXINE SODIUM
     Indication: Product used for unknown indication
     Dosage: 1 TABLET AND 1/2 TABLET?EVERY OTHER DAY
  4. PREDNISONE [Concomitant]
     Active Substance: PREDNISONE
     Indication: Product used for unknown indication
  5. Biofenac [Concomitant]
     Indication: Product used for unknown indication
     Dosage: FREQUENCY TEXT: MAX 2 TABLET PER DAY
  6. MAGNESIUM [Concomitant]
     Active Substance: MAGNESIUM
     Indication: Product used for unknown indication
     Dosage: FREQUENCY TEXT: AS NEEDED
  7. VALZAP COMBI [Concomitant]
     Indication: Product used for unknown indication
     Dosage: 80MG/12.5MG?1-0-0
  8. CALTRATE [Concomitant]
     Active Substance: CALCIUM CARBONATE
     Indication: Product used for unknown indication
     Dosage: 600/400?FREQUENCY TEXT: EVERY OTHER DAY
  9. Vigantol [Concomitant]
     Indication: Product used for unknown indication
     Dosage: 89 NMOL?14 DROPS PER WEEK
     Dates: start: 202202
  10. Vigantol [Concomitant]
     Indication: Product used for unknown indication
     Dosage: 70 NMOL?21 DROPS PER WEEK
     Dates: start: 202101
  11. OMEPRAZOLE [Concomitant]
     Active Substance: OMEPRAZOLE
     Indication: Product used for unknown indication
     Dosage: AS NEEDED
  12. NIMESULIDE [Concomitant]
     Active Substance: NIMESULIDE
     Indication: Product used for unknown indication
  13. METOPROLOL TARTRATE [Concomitant]
     Active Substance: METOPROLOL TARTRATE
     Indication: Hypertension
     Dosage: 1-0-0 + AS NEEDED

REACTIONS (9)
  - Nodular melanoma [Recovered/Resolved]
  - Cough [Unknown]
  - Wound [Unknown]
  - Vomiting [Unknown]
  - Impaired healing [Unknown]
  - Upper respiratory tract infection [Unknown]
  - Urinary incontinence [Unknown]
  - Haemorrhage [Recovered/Resolved]
  - Asphyxia [Unknown]

NARRATIVE: CASE EVENT DATE: 20230721
